FAERS Safety Report 7965471-2 (Version None)
Quarter: 2011Q4

REPORT INFORMATION
  Report Type: 
  Country: None (occurrence: None)
  Receive Date: 20111208
  Receipt Date: 20111201
  Transmission Date: 20120403
  Serious: Yes (Hospitalization)
  Sender: FDA-Public Use
  Company Number: US-ABBOTT-11P-163-0879684-00

PATIENT
  Sex: Female

DRUGS (11)
  1. METHOTREXATE [Concomitant]
     Indication: RHEUMATOID ARTHRITIS
  2. FOLIC ACID [Concomitant]
     Indication: RHEUMATOID ARTHRITIS
  3. MACRODANTIN [Concomitant]
     Indication: CYSTITIS
  4. MAVIC [Concomitant]
     Indication: HYPERTENSION
  5. DITROPAN XL [Concomitant]
     Indication: URINARY INCONTINENCE
  6. MACRODANTIN [Concomitant]
     Indication: PROPHYLAXIS
  7. ATENOLOL [Concomitant]
     Indication: HYPERTENSION
  8. HUMIRA [Suspect]
     Indication: RHEUMATOID ARTHRITIS
     Dates: start: 20090101
  9. INSULIN [Concomitant]
     Indication: DIABETES MELLITUS
  10. ZOLOFT [Concomitant]
     Indication: DEPRESSION
  11. ZOCOR [Concomitant]
     Indication: LOW DENSITY LIPOPROTEIN INCREASED

REACTIONS (1)
  - OSTEOARTHRITIS [None]
